FAERS Safety Report 23166990 (Version 1)
Quarter: 2023Q4

REPORT INFORMATION
  Report Type: Spontaneous
  Country: BE (occurrence: BE)
  Receive Date: 20231109
  Receipt Date: 20231109
  Transmission Date: 20240110
  Serious: Yes (Hospitalization, Other)
  Sender: FDA-Public Use
  Company Number: BE-Accord-386434

PATIENT
  Age: 78 Year
  Sex: Male

DRUGS (24)
  1. PACLITAXEL [Suspect]
     Active Substance: PACLITAXEL
     Indication: Ductal adenocarcinoma of pancreas
     Dosage: 180.2 MG, SINGLE
     Dates: start: 20230918, end: 20230918
  2. PACLITAXEL [Suspect]
     Active Substance: PACLITAXEL
     Dosage: 177.07 MG, SINGLE
     Dates: start: 20230911, end: 20230911
  3. PACLITAXEL [Suspect]
     Active Substance: PACLITAXEL
     Dosage: 228.42 MG, SINGLE
     Dates: start: 20230814, end: 20230814
  4. PACLITAXEL [Suspect]
     Active Substance: PACLITAXEL
     Dosage: 228.42 MG, SINGLE
     Dates: start: 20230807, end: 20230807
  5. PACLITAXEL [Suspect]
     Active Substance: PACLITAXEL
     Dosage: 179.09 MG, SINGLE
     Dates: start: 20230828, end: 20230828
  6. GEMCITABINE HYDROCHLORIDE [Suspect]
     Active Substance: GEMCITABINE HYDROCHLORIDE
     Indication: Ductal adenocarcinoma of pancreas
     Dosage: 1442 MG, SINGLE
     Dates: start: 20230918, end: 20230918
  7. GEMCITABINE HYDROCHLORIDE [Suspect]
     Active Substance: GEMCITABINE HYDROCHLORIDE
     Dosage: 1828 MG, SINGLE
     Dates: start: 20230807, end: 20230807
  8. GEMCITABINE HYDROCHLORIDE [Suspect]
     Active Substance: GEMCITABINE HYDROCHLORIDE
     Dosage: 1817 MG, SINGLE
     Dates: start: 20230911, end: 20230911
  9. GEMCITABINE HYDROCHLORIDE [Suspect]
     Active Substance: GEMCITABINE HYDROCHLORIDE
     Dosage: 1828 MG, SINGLE
     Dates: start: 20230814, end: 20230814
  10. GEMCITABINE HYDROCHLORIDE [Suspect]
     Active Substance: GEMCITABINE HYDROCHLORIDE
     Dosage: 1433 MG, SINGLE
     Dates: start: 20230828, end: 20230828
  11. HYALURONATE SODIUM\TREHALOSE [Concomitant]
     Active Substance: HYALURONATE SODIUM\TREHALOSE
     Indication: Glaucoma
     Dosage: 1 OTHER DROP, 1 DOSAGE FORM, 2 IN 1 DAY, OCULAR
     Dates: start: 20230802
  12. DAFALGAN [Concomitant]
     Active Substance: ACETAMINOPHEN
     Indication: Myalgia
     Dosage: 1 GM, AS REQUIRED
     Route: 048
     Dates: start: 20230810
  13. DUTASTERIDE\TAMSULOSIN HYDROCHLORIDE [Concomitant]
     Active Substance: DUTASTERIDE\TAMSULOSIN HYDROCHLORIDE
     Indication: Benign prostatic hyperplasia
     Dosage: 0.5/0.4 MG, 1 IN 1 DAY
     Route: 048
     Dates: start: 20190719
  14. MYROSOR [Concomitant]
     Indication: Hypercholesterolaemia
     Dosage: 20-10 MG, 1 IN 1 DAYS
     Route: 048
     Dates: start: 20221227
  15. CEFEPIME [Concomitant]
     Active Substance: CEFEPIME HYDROCHLORIDE
     Indication: Febrile neutropenia
     Dosage: 2 MG, 2 IN 1 DAY
     Dates: start: 20230821, end: 20230826
  16. BISOPROLOL [Concomitant]
     Active Substance: BISOPROLOL\BISOPROLOL FUMARATE
     Indication: Ventricular fibrillation
     Dosage: 2.5 MG, 1 IN 1 DAY
     Route: 048
     Dates: start: 20200925
  17. PRIMPERAN [Concomitant]
     Active Substance: METOCLOPRAMIDE HYDROCHLORIDE
     Indication: Malaise
     Dosage: 10 MG, 3 IN 1 DAY
     Route: 048
     Dates: start: 20230824
  18. EDOXABAN TOSYLATE [Concomitant]
     Active Substance: EDOXABAN TOSYLATE
     Indication: Ventricular fibrillation
     Dosage: 1 IN 1 DAYS
     Route: 048
     Dates: start: 20200108
  19. ENOXAPARIN SODIUM [Concomitant]
     Active Substance: ENOXAPARIN SODIUM
     Indication: Superficial vein thrombosis
     Dosage: 1 IN 1 DAYS
     Route: 058
     Dates: start: 20230901, end: 20230910
  20. LEVOCETIRIZINE DIHYDROCHLORIDE [Concomitant]
     Active Substance: LEVOCETIRIZINE DIHYDROCHLORIDE
     Indication: Pruritus
     Dosage: 1 IN 1 DAY
     Route: 048
     Dates: start: 20230913
  21. TRAMADOL HYDROCHLORIDE [Concomitant]
     Active Substance: TRAMADOL HYDROCHLORIDE
     Indication: Myalgia
     Dosage: 50 MG
     Route: 060
     Dates: start: 20230824, end: 20230825
  22. FLUCLOXACILLIN [Concomitant]
     Active Substance: FLUCLOXACILLIN
     Indication: C-reactive protein increased
     Dosage: FREQ:12 H; 6 MG, 1 IN 12 HOURS
     Dates: start: 20230921, end: 20230925
  23. ARGININE [Concomitant]
     Active Substance: ARGININE
     Indication: Decreased appetite
     Dosage: 9.8 OTHER GN, 9.8 DOSAGE FORM, 1 IN 1 DAY
     Dates: start: 20230821, end: 20230826
  24. METARELAX [Concomitant]
     Indication: Prophylaxis
     Dosage: 1 IN 1 DAY
     Route: 048
     Dates: start: 2020

REACTIONS (2)
  - Cellulitis [Not Recovered/Not Resolved]
  - Erysipelas [Not Recovered/Not Resolved]

NARRATIVE: CASE EVENT DATE: 20230921
